FAERS Safety Report 8410171-8 (Version None)
Quarter: 2012Q2

REPORT INFORMATION
  Report Type: 
  Country: None (occurrence: None)
  Receive Date: 20120605
  Receipt Date: 20120529
  Transmission Date: 20120825
  Serious: Yes (Hospitalization, Other)
  Sender: FDA-Public Use
  Company Number: PHHY2012FR046981

PATIENT
  Sex: Male

DRUGS (5)
  1. ATENOLOL [Concomitant]
     Dosage: 50 MG, QD
  2. MIRTAZAPINE [Concomitant]
     Dosage: 15 MG, QD
  3. VOLTAREN [Suspect]
     Indication: PAIN IN EXTREMITY
     Route: 048
  4. OXAZEPAM [Concomitant]
     Dosage: 10 MG, TID
  5. LORAZEPAM [Concomitant]
     Dosage: 2.5 MG, QD

REACTIONS (13)
  - DUODENAL ULCER [None]
  - MELAENA [None]
  - DECREASED APPETITE [None]
  - MALAISE [None]
  - HAEMOGLOBIN DECREASED [None]
  - GENERAL PHYSICAL HEALTH DETERIORATION [None]
  - TACHYCARDIA [None]
  - HAEMATEMESIS [None]
  - OESOPHAGITIS [None]
  - WEIGHT DECREASED [None]
  - HYPOTENSION [None]
  - FALL [None]
  - RECTAL HAEMORRHAGE [None]
